FAERS Safety Report 20828134 (Version 2)
Quarter: 2023Q1

REPORT INFORMATION
  Report Type: Spontaneous
  Country: US (occurrence: US)
  Receive Date: 20220513
  Receipt Date: 20230303
  Transmission Date: 20230417
  Serious: No
  Sender: FDA-Public Use
  Company Number: US-SA-SAC20220506000172

PATIENT
  Age: 8 Year
  Sex: Female

DRUGS (2)
  1. DUPIXENT [Suspect]
     Active Substance: DUPILUMAB
     Indication: Asthma
     Dosage: UNK UNK, QOW
     Route: 058
  2. DUPIXENT [Suspect]
     Active Substance: DUPILUMAB
     Dosage: 200 MG
     Route: 058
     Dates: start: 202301

REACTIONS (3)
  - Migraine [Not Recovered/Not Resolved]
  - Gastric disorder [Unknown]
  - Arthralgia [Not Recovered/Not Resolved]
